FAERS Safety Report 18500578 (Version 5)
Quarter: 2021Q2

REPORT INFORMATION
  Report Type: Report from Study
  Country: JP (occurrence: JP)
  Receive Date: 20201113
  Receipt Date: 20210408
  Transmission Date: 20210717
  Serious: Yes (Other)
  Sender: FDA-Public Use
  Company Number: JP-ASTELLAS-2020JP017266

PATIENT
  Age: 40 Year
  Sex: Female
  Weight: 52 kg

DRUGS (16)
  1. ASP2215 [Suspect]
     Active Substance: GILTERITINIB
     Indication: ACUTE MYELOID LEUKAEMIA
     Route: 065
     Dates: start: 20201029, end: 20201108
  2. SOLDEM 3A [Concomitant]
     Active Substance: CARBOHYDRATES\POTASSIUM CHLORIDE\SODIUM CHLORIDE\SODIUM LACTATE
     Indication: FLUID REPLACEMENT
     Dosage: UNK UNK, ONCE DAILY, ?1 BAG EVERY TIME
     Route: 042
     Dates: start: 20201022
  3. MEROPENEM. [Concomitant]
     Active Substance: MEROPENEM
     Indication: FEBRILE NEUTROPENIA
     Route: 041
     Dates: start: 20201106
  4. IDARUBICIN [Suspect]
     Active Substance: IDARUBICIN
     Indication: ACUTE MYELOID LEUKAEMIA
     Dosage: 12 MG/M2, ONCE DAILY, CONSECUTIVELY 3 DAYS FROM DAY1
     Route: 042
     Dates: start: 20201022, end: 20201024
  5. RECOMODULIN [Concomitant]
     Active Substance: THROMBOMODULIN ALFA
     Indication: DISSEMINATED INTRAVASCULAR COAGULATION
     Dosage: UNK UNK, UNKNOWN FREQ.
     Route: 065
     Dates: start: 20201022, end: 20201024
  6. MEROPENEM. [Concomitant]
     Active Substance: MEROPENEM
     Dosage: 3 G/ DAY, UNKNOWN FREQ.
     Route: 041
     Dates: start: 20201108
  7. MEROPENEM. [Concomitant]
     Active Substance: MEROPENEM
     Dosage: 2 G/ DAY, UNKNOWN FREQ.
     Route: 041
     Dates: start: 20201107
  8. TAKECAB [Concomitant]
     Active Substance: VONOPRAZAN FUMARATE
     Indication: PROPHYLAXIS
     Route: 048
     Dates: start: 20201021
  9. MAGMITT [Concomitant]
     Active Substance: MAGNESIUM OXIDE
     Indication: CONSTIPATION PROPHYLAXIS
     Route: 048
     Dates: start: 20201202, end: 20201215
  10. CYTARABINE. [Suspect]
     Active Substance: CYTARABINE
     Dosage: CONSOLIDATION THERAPY:1500 MG/M2, TWICE DAILY, EVERY 12 HOURS ON DAY 1, 3, 5
     Route: 042
     Dates: start: 20201201, end: 20201205
  11. XYLOCAINE #1 [Concomitant]
     Active Substance: LIDOCAINE
     Indication: PERIODONTITIS
     Dosage: UNK UNK, DISSOLVED IN AN APPROPRIATE AMOUNT OF WATER AND GARGLE SEVERAL TIMES A DAY
     Route: 061
     Dates: start: 20201203
  12. ASP2215 [Suspect]
     Active Substance: GILTERITINIB
     Route: 065
     Dates: start: 20201201, end: 20201214
  13. CYTARABINE. [Suspect]
     Active Substance: CYTARABINE
     Indication: ACUTE MYELOID LEUKAEMIA
     Dosage: REMISSION INDUCTION THERAPY:100 MG/M2, ONCE DAILY, CONSECUTIVELY FROM DAY1 TO DAY7
     Route: 042
     Dates: start: 20201022, end: 20201029
  14. CEFEPIME HYDROCHLORIDE. [Concomitant]
     Active Substance: CEFEPIME HYDROCHLORIDE
     Indication: FEBRILE NEUTROPENIA
     Dosage: 2 G/DAY, UNKNOWN FREQ.
     Route: 065
     Dates: start: 20201030, end: 20201106
  15. CEFEPIME HYDROCHLORIDE. [Concomitant]
     Active Substance: CEFEPIME HYDROCHLORIDE
     Route: 042
     Dates: start: 20201213
  16. MEROPENEM. [Concomitant]
     Active Substance: MEROPENEM
     Dosage: UNK UNK, THRICE DAILY, 2 BOTTLES PER TIME
     Route: 041
     Dates: start: 20201109

REACTIONS (2)
  - Platelet count decreased [Recovered/Resolved]
  - Platelet count decreased [Recovered/Resolved]

NARRATIVE: CASE EVENT DATE: 20201109
